FAERS Safety Report 4884021-0 (Version None)
Quarter: 2006Q1

REPORT INFORMATION
  Report Type: 
  Country: None (occurrence: None)
  Receive Date: 20060117
  Receipt Date: 20060103
  Transmission Date: 20060701
  Serious: Yes (Disabling)
  Sender: FDA-Public Use
  Company Number: CERZ-11097

PATIENT
  Age: 13 Year
  Sex: Female
  Weight: 32.7 kg

DRUGS (4)
  1. CEREZYME [Suspect]
     Indication: GAUCHER'S DISEASE
     Dosage: 1000 UNITS QWK IV
     Route: 042
  2. CEREZYME [Suspect]
     Indication: GAUCHER'S DISEASE
     Dosage: 60 U/KG QWK IV
     Route: 042
     Dates: start: 20011001
  3. CEREZYME [Suspect]
     Indication: GAUCHER'S DISEASE
     Dosage: 30 U/KG QWK IV
     Route: 042
     Dates: start: 20000201, end: 20011001
  4. CEREZYME [Suspect]
     Indication: GAUCHER'S DISEASE
     Dosage: 60 U/KG Q2WKS IV
     Route: 042
     Dates: start: 19981201, end: 20000201

REACTIONS (1)
  - VISUAL ACUITY REDUCED [None]
